FAERS Safety Report 8121057-0 (Version None)
Quarter: 2012Q1

REPORT INFORMATION
  Report Type: 
  Country: None (occurrence: None)
  Receive Date: 20120203
  Receipt Date: 20120123
  Transmission Date: 20120608
  Serious: Yes (Death, Other)
  Sender: FDA-Public Use
  Company Number: 1150476

PATIENT
  Age: 62 Year
  Sex: Male

DRUGS (10)
  1. METHOTREXATE [Suspect]
     Indication: RHEUMATOID ARTHRITIS
  2. HYDROCORTISONE [Concomitant]
  3. SPIRONOLACTONE [Concomitant]
  4. CALCIUM CARBONATE [Concomitant]
  5. OMEPRAZOLE [Concomitant]
  6. LACTULOSE [Concomitant]
  7. PROPRANOLOL [Concomitant]
  8. HYDROXYCHLOROQUINE SULFATE [Concomitant]
  9. FERROUS FUMARATE [Concomitant]
  10. RISEDRONATE SODIUM [Concomitant]

REACTIONS (3)
  - LIVER FUNCTION TEST ABNORMAL [None]
  - NODULAR REGENERATIVE HYPERPLASIA [None]
  - SEPSIS [None]
